FAERS Safety Report 16676351 (Version 1)
Quarter: 2019Q3

REPORT INFORMATION
  Report Type: Report from Study
  Country: ES (occurrence: ES)
  Receive Date: 20190807
  Receipt Date: 20190807
  Transmission Date: 20191004
  Serious: Yes (Hospitalization)
  Sender: FDA-Public Use
  Company Number: ES-IPSEN BIOPHARMACEUTICALS, INC.-2019-13847

PATIENT
  Sex: Female

DRUGS (6)
  1. NALOXEGOL [Concomitant]
     Active Substance: NALOXEGOL
  2. ONIVYDE [Suspect]
     Active Substance: IRINOTECAN HYDROCHLORIDE
     Indication: BREAST CANCER
     Dosage: DOSE: 60 MG/M2-84.36 MG
     Route: 065
     Dates: start: 20190717
  3. LORAZEPAM. [Concomitant]
     Active Substance: LORAZEPAM
  4. DEXAMETHASONE. [Concomitant]
     Active Substance: DEXAMETHASONE
  5. INDOMETACIN [Concomitant]
     Active Substance: INDOMETHACIN
  6. ATORVASTATINE [Concomitant]
     Active Substance: ATORVASTATIN

REACTIONS (2)
  - Diarrhoea [Recovering/Resolving]
  - Vomiting [Recovering/Resolving]

NARRATIVE: CASE EVENT DATE: 20190718
